FAERS Safety Report 10239774 (Version 3)
Quarter: 2014Q3

REPORT INFORMATION
  Report Type: Spontaneous
  Country: US (occurrence: None)
  Receive Date: 20140612
  Receipt Date: 20140714
  Transmission Date: 20150326
  Serious: Yes (Hospitalization)
  Sender: FDA-Public Use
  Company Number: 2014SGN00668

PATIENT
  Age: 70 Year
  Sex: Male
  Weight: 92.5 kg

DRUGS (2)
  1. BRENTUXIMAB VEDOTIN (BRENTUXIMAB VEDOTIN) INJECTION [Suspect]
     Active Substance: BRENTUXIMAB VEDOTIN
     Indication: HODGKIN^S DISEASE
     Dosage: UNK, UNK, QCYCLE, INTRAVENOUS
     Route: 042
     Dates: start: 20140429, end: 20140521
  2. BENDAMUSTINE HYDROCHLORIDE [Suspect]
     Active Substance: BENDAMUSTINE HYDROCHLORIDE
     Indication: HODGKIN^S DISEASE
     Dosage: UNK, QCYCLE, INTRAVENOUS
     Route: 042
     Dates: start: 20140429, end: 20140521

REACTIONS (7)
  - Pyrexia [None]
  - Flushing [None]
  - Rash [None]
  - Atelectasis [None]
  - Infusion related reaction [None]
  - Hypotension [None]
  - Hypoxia [None]

NARRATIVE: CASE EVENT DATE: 20140522
